FAERS Safety Report 23699501 (Version 1)
Quarter: 2024Q2

REPORT INFORMATION
  Report Type: Spontaneous
  Country: US (occurrence: US)
  Receive Date: 20240402
  Receipt Date: 20240402
  Transmission Date: 20240716
  Serious: No
  Sender: FDA-Public Use
  Company Number: US-JNJFOC-20240385835

PATIENT
  Age: 57 Year
  Sex: Male
  Weight: 70.37 kg

DRUGS (3)
  1. BALVERSA [Suspect]
     Active Substance: ERDAFITINIB
     Indication: Oesophageal cancer metastatic
     Dosage: 3MG, 2 PER DAY
     Route: 048
     Dates: start: 20240313
  2. NIVOLUMAB [Concomitant]
     Active Substance: NIVOLUMAB
     Indication: Oesophageal cancer metastatic
     Route: 065
  3. ELIQUIS [Concomitant]
     Active Substance: APIXABAN
     Indication: Deep vein thrombosis
     Route: 065

REACTIONS (2)
  - Blood phosphorus increased [Unknown]
  - Off label use [Unknown]

NARRATIVE: CASE EVENT DATE: 20240313
